FAERS Safety Report 10148989 (Version 2)
Quarter: 2014Q2

REPORT INFORMATION
  Report Type: Spontaneous
  Country: US (occurrence: US)
  Receive Date: 20140502
  Receipt Date: 20140623
  Transmission Date: 20141212
  Serious: Yes (Hospitalization)
  Sender: FDA-Public Use
  Company Number: US-BRISTOL-MYERS SQUIBB COMPANY-20673984

PATIENT
  Age: 62 Year
  Sex: Female

DRUGS (9)
  1. FARXIGA [Suspect]
     Indication: TYPE 2 DIABETES MELLITUS
     Route: 048
     Dates: start: 20140227, end: 20140424
  2. SIMVASTATIN [Concomitant]
  3. PROVERA [Concomitant]
  4. GLIPIZIDE [Concomitant]
  5. XARELTO [Concomitant]
  6. SOTALOL [Concomitant]
  7. ACTOS [Concomitant]
  8. JANUMET [Concomitant]
  9. PROTONIX [Concomitant]

REACTIONS (2)
  - Syncope [Unknown]
  - Off label use [Unknown]
